FAERS Safety Report 7732703-5 (Version None)
Quarter: 2011Q3

REPORT INFORMATION
  Report Type: 
  Country: None (occurrence: None)
  Receive Date: 20110907
  Receipt Date: 20110830
  Transmission Date: 20111222
  Serious: Yes (Hospitalization)
  Sender: FDA-Public Use
  Company Number: DE-BIOGENIDEC-2011BI032926

PATIENT
  Age: 68 Year
  Sex: Female
  Weight: 53 kg

DRUGS (1)
  1. AVONEX [Suspect]
     Indication: MULTIPLE SCLEROSIS
     Route: 030
     Dates: start: 20100901

REACTIONS (2)
  - FEMORAL NECK FRACTURE [None]
  - FALL [None]
